FAERS Safety Report 14029792 (Version 1)
Quarter: 2017Q4

REPORT INFORMATION
  Report Type: Spontaneous
  Country: TN (occurrence: TN)
  Receive Date: 20171002
  Receipt Date: 20171002
  Transmission Date: 20180321
  Serious: Yes (Other)
  Sender: FDA-Public Use
  Company Number: TN-MYLANLABS-2017M1060639

PATIENT
  Age: 48 Year
  Sex: Male

DRUGS (3)
  1. MOXONIDINE [Concomitant]
     Active Substance: MOXONIDINE
     Indication: MYOCARDIAL INFARCTION
     Dosage: 0.4MG/DAY
     Route: 065
     Dates: start: 20160815
  2. CAPTOPRIL. [Suspect]
     Active Substance: CAPTOPRIL
     Indication: MYOCARDIAL INFARCTION
     Dosage: 150MG/DAY
     Route: 065
     Dates: start: 20160815, end: 20160923
  3. NIMODIPINE. [Concomitant]
     Active Substance: NIMODIPINE
     Indication: MYOCARDIAL INFARCTION
     Dosage: 360MG/DAY
     Route: 065
     Dates: start: 20160815

REACTIONS (1)
  - Drug reaction with eosinophilia and systemic symptoms [Recovered/Resolved]

NARRATIVE: CASE EVENT DATE: 20160901
